FAERS Safety Report 8544796-6 (Version None)
Quarter: 2012Q3

REPORT INFORMATION
  Report Type: 
  Country: None (occurrence: None)
  Receive Date: 20120727
  Receipt Date: 20120713
  Transmission Date: 20120928
  Serious: Yes (Hospitalization)
  Sender: FDA-Public Use
  Company Number: US-ROCHE-1088118

PATIENT
  Sex: Female
  Weight: 68.1 kg

DRUGS (6)
  1. ROCEPHIN [Suspect]
     Indication: ARTHRITIS INFECTIVE
  2. TRAMADOL HCL [Concomitant]
  3. PROPRANOLOL [Concomitant]
     Indication: RESTLESS LEGS SYNDROME
  4. AMITRIPTYLINE HYDROCHLORIDE [Concomitant]
  5. PRISTIQ [Suspect]
     Indication: DEPRESSION
     Dates: start: 20120101
  6. VANCOMYCIN [Suspect]
     Indication: ARTHRITIS INFECTIVE

REACTIONS (13)
  - INFECTION [None]
  - PSYCHOTIC DISORDER [None]
  - PROTEUS INFECTION [None]
  - DELUSION [None]
  - HIP ARTHROPLASTY [None]
  - ANXIETY [None]
  - AMNESIA [None]
  - IRRITABILITY [None]
  - DRUG INTERACTION [None]
  - MEMORY IMPAIRMENT [None]
  - SUICIDAL IDEATION [None]
  - ANGER [None]
  - STAPHYLOCOCCAL INFECTION [None]
